FAERS Safety Report 6232420-7 (Version None)
Quarter: 2009Q2

REPORT INFORMATION
  Report Type: 
  Country: None (occurrence: None)
  Receive Date: 20090617
  Receipt Date: 20090610
  Transmission Date: 20091009
  Serious: Yes (Other)
  Sender: FDA-Public Use
  Company Number: PH-JNJFOC-20090602716

PATIENT
  Age: 26 Year
  Sex: Male

DRUGS (2)
  1. INVEGA [Suspect]
     Indication: SCHIZOPHRENIA
     Route: 048
  2. VALPROATE SODIUM [Concomitant]
     Indication: SCHIZOPHRENIA

REACTIONS (1)
  - VISION BLURRED [None]
